FAERS Safety Report 20645221 (Version 1)
Quarter: 2022Q1

REPORT INFORMATION
  Report Type: Spontaneous
  Country: US (occurrence: US)
  Receive Date: 20220328
  Receipt Date: 20220328
  Transmission Date: 20220423
  Serious: Yes (Other)
  Sender: FDA-Public Use
  Company Number: US-PROCTER+GAMBLE-PH22002832

PATIENT
  Sex: Male

DRUGS (3)
  1. VICKS VAPORUB [Suspect]
     Active Substance: CAMPHOR (SYNTHETIC)\EUCALYPTUS OIL\MENTHOL
     Dosage: UNK
     Route: 065
  2. TIGER BALM [Suspect]
     Active Substance: CAMPHOR (SYNTHETIC)\CAPSICUM OLEORESIN\MENTHOL\METHYL SALICYLATE
     Dosage: UNK
     Route: 065
  3. regular medication [Concomitant]
     Dosage: UNK

REACTIONS (1)
  - Seizure [Unknown]
